FAERS Safety Report 5851199-1 (Version None)
Quarter: 2008Q3

REPORT INFORMATION
  Report Type: 
  Country: None (occurrence: None)
  Receive Date: 20080818
  Receipt Date: 20080801
  Transmission Date: 20090109
  Serious: No
  Sender: FDA-Public Use
  Company Number: DE-ASTRAZENECA-2008PK01780

PATIENT

DRUGS (1)
  1. SEROQUEL PROLONG [Suspect]
     Route: 048

REACTIONS (1)
  - LEUKOPENIA [None]
